FAERS Safety Report 4522769-8 (Version None)
Quarter: 2004Q4

REPORT INFORMATION
  Report Type: 
  Country: None (occurrence: None)
  Receive Date: 20041207
  Receipt Date: 20041119
  Transmission Date: 20050328
  Serious: Yes (Hospitalization)
  Sender: FDA-Public Use
  Company Number: A02200403448

PATIENT
  Age: 41 Year
  Sex: Female

DRUGS (5)
  1. PLAQUENIL [Suspect]
     Indication: SYSTEMIC LUPUS ERYTHEMATOSUS
     Dosage: 400 MG,
     Route: 048
     Dates: end: 20041001
  2. PREDNISONE [Suspect]
     Indication: SYSTEMIC LUPUS ERYTHEMATOSUS
     Dosage: 12.5 MG OD ORAL
     Route: 048
     Dates: end: 20041001
  3. LAMICTAL [Suspect]
     Indication: EPILEPSY
     Dosage: 50 MG  ORAL
     Route: 048
     Dates: start: 20040915, end: 20041001
  4. CACIT D3                  (CALCIUM/COLECALCIFEROL) [Concomitant]
  5. ACETAMINOPHEN [Concomitant]

REACTIONS (34)
  - ACIDOSIS [None]
  - CHOLESTASIS [None]
  - CLONUS [None]
  - COAGULOPATHY [None]
  - CONDITION AGGRAVATED [None]
  - CONFUSIONAL STATE [None]
  - CYTOLYTIC HEPATITIS [None]
  - DIARRHOEA [None]
  - DISORIENTATION [None]
  - DISSEMINATED INTRAVASCULAR COAGULATION [None]
  - EPILEPSY [None]
  - HAEMODIALYSIS [None]
  - HAEMOTHORAX [None]
  - HEPATIC FAILURE [None]
  - HYPERAMYLASAEMIA [None]
  - HYPERLACTACIDAEMIA [None]
  - HYPERSENSITIVITY [None]
  - HYPERTHERMIA [None]
  - HYPOVOLAEMIA [None]
  - HYPOXIA [None]
  - LIPASE INCREASED [None]
  - LOSS OF CONSCIOUSNESS [None]
  - NYSTAGMUS [None]
  - PANCREATIC DISORDER [None]
  - PAROTITIS [None]
  - POST PROCEDURAL HAEMORRHAGE [None]
  - RENAL FAILURE ACUTE [None]
  - RESPIRATORY ALKALOSIS [None]
  - STREPTOCOCCAL SEPSIS [None]
  - SYSTEMIC LUPUS ERYTHEMATOSUS [None]
  - TACHYPNOEA [None]
  - TOXIC SKIN ERUPTION [None]
  - VIRAL INFECTION [None]
  - VOMITING [None]
